FAERS Safety Report 15689177 (Version 1)
Quarter: 2018Q4

REPORT INFORMATION
  Report Type: Spontaneous
  Country: IT (occurrence: IT)
  Receive Date: 20181205
  Receipt Date: 20181205
  Transmission Date: 20190205
  Serious: Yes (Hospitalization, Other)
  Sender: FDA-Public Use
  Company Number: PHHY2018IT171822

PATIENT
  Age: 59 Year
  Sex: Female

DRUGS (4)
  1. 5-FLUOROURACIL [Concomitant]
     Active Substance: FLUOROURACIL
     Indication: COLORECTAL CANCER METASTATIC
     Dosage: 1200 MG/M2, CYCLIC (DAYS 1-2 CONTINUOUS INFUSION)
     Route: 041
  2. 5-FLUOROURACIL [Concomitant]
     Active Substance: FLUOROURACIL
     Dosage: 400 MG/M2, CYCLIC (DAY 1, BOLUS)
     Route: 040
  3. OXALIPLATIN. [Suspect]
     Active Substance: OXALIPLATIN
     Indication: COLORECTAL CANCER METASTATIC
     Dosage: 100 MG/M2, CYCLIC (OVER 2 HOURS, 3 CYCLES)
     Route: 041
  4. FOLINIC ACID [Concomitant]
     Active Substance: LEUCOVORIN
     Indication: COLORECTAL CANCER METASTATIC
     Dosage: 200 MG/M2, CYCLIC
     Route: 041

REACTIONS (12)
  - Loss of consciousness [Recovered/Resolved]
  - Hypocalcaemia [Recovered/Resolved]
  - Respiratory distress [Recovered/Resolved]
  - Neuropathy peripheral [Recovered/Resolved]
  - Dysarthria [Recovered/Resolved]
  - Hypokalaemia [Recovered/Resolved]
  - Paraesthesia [Recovered/Resolved]
  - Diplopia [Recovered/Resolved]
  - Coma [Recovered/Resolved]
  - Lethargy [Recovered/Resolved]
  - Paralysis [Recovered/Resolved]
  - Electrolyte imbalance [Recovered/Resolved]
